FAERS Safety Report 18390119 (Version 2)
Quarter: 2020Q4

REPORT INFORMATION
  Report Type: Report from Study
  Country: IT (occurrence: IT)
  Receive Date: 20201016
  Receipt Date: 20201020
  Transmission Date: 20210114
  Serious: Yes (Other)
  Sender: FDA-Public Use
  Company Number: IT-ACCORD-205144

PATIENT
  Age: 77 Year
  Sex: Female

DRUGS (2)
  1. GEMCITABINE. [Suspect]
     Active Substance: GEMCITABINE
     Indication: PANCREATIC NEOPLASM
     Route: 042
     Dates: start: 20200825
  2. PACLITAXEL/PACLITAXEL LIPOSOME [Suspect]
     Active Substance: PACLITAXEL
     Indication: PANCREATIC NEOPLASM
     Route: 042
     Dates: start: 20200825

REACTIONS (6)
  - Face oedema [Recovering/Resolving]
  - Localised oedema [Recovering/Resolving]
  - Oedema [Recovering/Resolving]
  - Flushing [Recovering/Resolving]
  - Off label use [Unknown]
  - Pruritus [Recovering/Resolving]

NARRATIVE: CASE EVENT DATE: 20200828
